FAERS Safety Report 9827756 (Version 2)
Quarter: 2014Q3

REPORT INFORMATION
  Report Type: Spontaneous
  Country: US (occurrence: US)
  Receive Date: 20140117
  Receipt Date: 20140821
  Transmission Date: 20150326
  Serious: Yes (Hospitalization)
  Sender: FDA-Public Use
  Company Number: US-009507513-1401USA006894

PATIENT
  Sex: Female

DRUGS (1)
  1. NUVARING [Suspect]
     Active Substance: ETHINYL ESTRADIOL\ETONOGESTREL
     Dosage: UNK
     Route: 067
     Dates: start: 201205, end: 20130611

REACTIONS (6)
  - Atrial thrombosis [Unknown]
  - Cerebral venous thrombosis [Unknown]
  - Jugular vein thrombosis [Unknown]
  - Iron deficiency anaemia [Unknown]
  - Lymphadenopathy [Unknown]
  - Simple partial seizures [Unknown]

NARRATIVE: CASE EVENT DATE: 20030611
